FAERS Safety Report 7031595-X (Version None)
Quarter: 2010Q4

REPORT INFORMATION
  Report Type: 
  Country: None (occurrence: None)
  Receive Date: 20101006
  Receipt Date: 20100928
  Transmission Date: 20110411
  Serious: Yes (Other)
  Sender: FDA-Public Use
  Company Number: GR-AMGEN-QUU442527

PATIENT
  Age: 49 Year
  Sex: Female

DRUGS (3)
  1. ENBREL [Suspect]
     Indication: RHEUMATOID ARTHRITIS
     Route: 058
     Dates: start: 20100501, end: 20100901
  2. T4 [Concomitant]
  3. METHOTREXATE [Concomitant]
     Dosage: 15MG WEEKLY
     Route: 048

REACTIONS (1)
  - BREAST CANCER [None]
